FAERS Safety Report 22661968 (Version 1)
Quarter: 2023Q2

REPORT INFORMATION
  Report Type: Spontaneous
  Country: FR (occurrence: FR)
  Receive Date: 20230630
  Receipt Date: 20230630
  Transmission Date: 20230722
  Serious: Yes (Hospitalization, Other)
  Sender: FDA-Public Use
  Company Number: FR-009507513-2306FRA008447

PATIENT
  Age: 53 Year
  Sex: Female
  Weight: 69 kg

DRUGS (5)
  1. KEYTRUDA [Suspect]
     Active Substance: PEMBROLIZUMAB
     Indication: Cervix carcinoma
     Dosage: 200 MILLIGRAM, Q3W
     Route: 042
     Dates: start: 20221128, end: 202304
  2. CARBOPLATIN [Suspect]
     Active Substance: CARBOPLATIN
     Indication: Cervix carcinoma
     Dosage: UNK
  3. CISPLATIN [Concomitant]
     Active Substance: CISPLATIN
     Indication: Cervix cancer metastatic
     Dosage: UNK, Q3W
     Dates: start: 20221128, end: 20230522
  4. TAXOL [Concomitant]
     Active Substance: PACLITAXEL
     Indication: Cervix cancer metastatic
     Dosage: UNK, Q3W
     Dates: start: 20221128, end: 20230522
  5. AVASTIN [Concomitant]
     Active Substance: BEVACIZUMAB
     Indication: Cervix cancer metastatic
     Dosage: UNK, Q3W
     Dates: start: 20221128, end: 20230522

REACTIONS (3)
  - Adrenal insufficiency [Not Recovered/Not Resolved]
  - Blood corticotrophin decreased [Recovering/Resolving]
  - Immune-mediated hypothyroidism [Recovering/Resolving]

NARRATIVE: CASE EVENT DATE: 20230323
